FAERS Safety Report 23255751 (Version 1)
Quarter: 2023Q4

REPORT INFORMATION
  Report Type: Other
  Country: CN (occurrence: None)
  Receive Date: 20231204
  Receipt Date: 20231204
  Transmission Date: 20240110
  Serious: Yes (Other)
  Sender: FDA-Public Use
  Company Number: CN-ROCHE-3466337

PATIENT

DRUGS (4)
  1. BEVACIZUMAB [Suspect]
     Active Substance: BEVACIZUMAB
     Indication: Non-small cell lung cancer
     Dosage: 7.5 MG/KG ADDED TO NORMAL SALINE 100 ML
     Route: 041
  2. SINTILIMAB [Suspect]
     Active Substance: SINTILIMAB
     Indication: Non-small cell lung cancer
     Dosage: 200 MG ADDED TO NORMAL SALINE 100 ML
     Route: 041
  3. PEMETREXED DISODIUM [Suspect]
     Active Substance: PEMETREXED DISODIUM
     Indication: Non-small cell lung cancer
     Dosage: 500 MG/M2 ADDED TO NORMAL SALINE 100 ML
     Route: 041
  4. CARBOPLATIN [Suspect]
     Active Substance: CARBOPLATIN
     Indication: Non-small cell lung cancer
     Dosage: 500 ML OF 5% GLUCOSE INJECTION BY INTRAVENOUS DRIP ACCORDING TO THE AREA UNDER THE CURVE OF 5 MG/ML/
     Route: 041

REACTIONS (9)
  - Neutrophil count decreased [Unknown]
  - White blood cell count decreased [Unknown]
  - Platelet count decreased [Unknown]
  - Anaemia [Unknown]
  - Fatigue [Unknown]
  - Blood creatinine increased [Unknown]
  - Decreased appetite [Unknown]
  - Transaminases increased [Unknown]
  - Nausea [Unknown]
